FAERS Safety Report 7956407-9 (Version None)
Quarter: 2011Q4

REPORT INFORMATION
  Report Type: 
  Country: None (occurrence: None)
  Receive Date: 20111205
  Receipt Date: 20111130
  Transmission Date: 20120403
  Serious: Yes (Other)
  Sender: FDA-Public Use
  Company Number: US-AMGEN-USASP2011063575

PATIENT
  Age: 7 Year
  Sex: Female

DRUGS (1)
  1. NPLATE [Suspect]
     Indication: IDIOPATHIC THROMBOCYTOPENIC PURPURA
     Dates: start: 20111101

REACTIONS (5)
  - HEADACHE [None]
  - ARTHRALGIA [None]
  - MIGRAINE [None]
  - ALOPECIA [None]
  - MUSCULOSKELETAL PAIN [None]
